FAERS Safety Report 15060445 (Version 1)
Quarter: 2018Q2

REPORT INFORMATION
  Report Type: Report from Study
  Country: CN (occurrence: CN)
  Receive Date: 20180625
  Receipt Date: 20180625
  Transmission Date: 20180711
  Serious: Yes (Other)
  Sender: FDA-Public Use
  Company Number: PHHY2018CN028532

PATIENT
  Age: 32 Year
  Sex: Male

DRUGS (16)
  1. RECOMBINANT HUMAN ERYTHROPOIETIN [Concomitant]
     Active Substance: ERYTHROPOIETIN
     Indication: PLATELET COUNT INCREASED
     Dosage: 6000 IU, SOS
     Route: 042
     Dates: start: 20180515, end: 20180515
  2. HUMAN HEPATITIS B IMMUNOGLOBULIN [Concomitant]
     Indication: ANTIVIRAL PROPHYLAXIS
     Dosage: 400 IU, SOS
     Route: 030
     Dates: start: 20180509, end: 20180509
  3. HYDROTALCITE [Concomitant]
     Active Substance: HYDROTALCITE
     Indication: GASTRIC PH INCREASED
     Dosage: 1000 MG, QD
     Route: 048
     Dates: start: 20180509
  4. PANTOPRAZOLE SODIUM. [Concomitant]
     Active Substance: PANTOPRAZOLE SODIUM
     Indication: GASTRIC PH INCREASED
     Dosage: 40 MG, TID
     Route: 048
     Dates: start: 20180512, end: 20180524
  5. BICYCLOL [Concomitant]
     Active Substance: BICYCLOL
     Indication: HEPATIC ENZYME INCREASED
     Dosage: 50 MG, TID
     Route: 048
     Dates: start: 20180514
  6. ESOMEPRAZOLE SODIUM. [Concomitant]
     Active Substance: ESOMEPRAZOLE SODIUM
     Dosage: 40 MG, SOS
     Route: 042
     Dates: start: 20180509, end: 20180509
  7. CASPOFUNGIN ACETATE. [Concomitant]
     Active Substance: CASPOFUNGIN ACETATE
     Dosage: 50 MG, SOS
     Route: 042
     Dates: start: 20180509, end: 20180509
  8. MYFORTIC [Suspect]
     Active Substance: MYCOPHENOLATE SODIUM
     Indication: PROPHYLAXIS
     Dosage: 1400 MG, QD
     Route: 065
     Dates: start: 20180508, end: 20180508
  9. ESOMEPRAZOLE SODIUM. [Concomitant]
     Active Substance: ESOMEPRAZOLE SODIUM
     Indication: GASTRIC PH DECREASED
     Dosage: 40 MG, QD
     Route: 042
     Dates: start: 20180509, end: 20180512
  10. RECOMBINANT HUMAN ERYTHROPOIETIN [Concomitant]
     Active Substance: ERYTHROPOIETIN
     Indication: NEPHROGENIC ANAEMIA
     Dosage: 6000 IU, UNK (W3D)
     Route: 042
     Dates: start: 20180515, end: 20180524
  11. BASILIXIMAB [Suspect]
     Active Substance: BASILIXIMAB
     Indication: PRODUCT USED FOR UNKNOWN INDICATION
     Dosage: UNK
     Route: 065
     Dates: start: 20180508, end: 20180508
  12. BICYCLOL [Concomitant]
     Active Substance: BICYCLOL
     Indication: CHRONIC HEPATITIS
  13. VANCOMYCIN HYDROCHLORIDE. [Concomitant]
     Active Substance: VANCOMYCIN HYDROCHLORIDE
     Indication: INFECTION
     Dosage: 500 MG, SOS
     Route: 042
     Dates: start: 20180515, end: 20180515
  14. MYFORTIC [Suspect]
     Active Substance: MYCOPHENOLATE SODIUM
     Dosage: 1400 MG, QD
     Route: 065
     Dates: start: 20180509
  15. CEFOPERAZONE [Concomitant]
     Active Substance: CEFOPERAZONE
     Indication: INFECTION
     Dosage: 2 G, Q12H
     Route: 042
     Dates: start: 20180509, end: 20180515
  16. CASPOFUNGIN ACETATE. [Concomitant]
     Active Substance: CASPOFUNGIN ACETATE
     Indication: INFECTION
     Dosage: 50 MG, QD
     Route: 042
     Dates: start: 20180509, end: 20180515

REACTIONS (4)
  - Incision site pain [Recovered/Resolved]
  - Liver function test abnormal [Not Recovered/Not Resolved]
  - Anaemia [Not Recovered/Not Resolved]
  - Delayed graft function [Not Recovered/Not Resolved]

NARRATIVE: CASE EVENT DATE: 20180509
